FAERS Safety Report 11777208 (Version 2)
Quarter: 2015Q4

REPORT INFORMATION
  Report Type: Spontaneous
  Country: US (occurrence: US)
  Receive Date: 20151125
  Receipt Date: 20151210
  Transmission Date: 20160304
  Serious: Yes (Other)
  Sender: FDA-Public Use
  Company Number: US-PFIZER INC-2015390091

PATIENT

DRUGS (1)
  1. SUTENT [Suspect]
     Active Substance: SUNITINIB MALATE
     Dosage: UNK

REACTIONS (6)
  - General physical health deterioration [Recovering/Resolving]
  - Immune system disorder [Recovering/Resolving]
  - Malaise [Unknown]
  - Cerebrovascular accident [Unknown]
  - Dehydration [Unknown]
  - Infection [Unknown]
